FAERS Safety Report 8369621-8 (Version None)
Quarter: 2012Q2

REPORT INFORMATION
  Report Type: 
  Country: None (occurrence: None)
  Receive Date: 20120518
  Receipt Date: 20120515
  Transmission Date: 20120825
  Serious: Yes (Other)
  Sender: FDA-Public Use
  Company Number: PHHY2012CA009927

PATIENT
  Sex: Female

DRUGS (3)
  1. SANDOSTATIN LAR [Suspect]
     Dosage: 30 MG, UNK
     Route: 030
     Dates: start: 20111001
  2. CHEMOTHERAPEUTICS [Concomitant]
  3. SANDOSTATIN LAR [Suspect]
     Indication: CARCINOID SYNDROME
     Dosage: 30 MG, QMO
     Route: 030
     Dates: start: 20110915

REACTIONS (7)
  - TYPE 2 DIABETES MELLITUS [None]
  - DIARRHOEA [None]
  - ABDOMINAL PAIN UPPER [None]
  - HEADACHE [None]
  - FATIGUE [None]
  - PARAESTHESIA [None]
  - MALAISE [None]
